FAERS Safety Report 20265703 (Version 2)
Quarter: 2022Q4

REPORT INFORMATION
  Report Type: Report from Study
  Country: TH (occurrence: TH)
  Receive Date: 20211231
  Receipt Date: 20221005
  Transmission Date: 20230112
  Serious: Yes (Other)
  Sender: FDA-Public Use
  Company Number: TH-NOVARTISPH-PHHY2018TH201510

PATIENT
  Sex: Female
  Weight: 58 kg

DRUGS (6)
  1. ENTRESTO [Suspect]
     Active Substance: SACUBITRIL\VALSARTAN
     Indication: Cardiac failure congestive
     Dosage: 0.5 DOSAGE FORM, BID
     Route: 048
  2. ENTRESTO [Suspect]
     Active Substance: SACUBITRIL\VALSARTAN
     Dosage: 0.25 DOSAGE FORM, BID (AFTER MEAL IN THE MORNING AND EVENING)
     Route: 048
  3. SPIRONOLACTONE [Concomitant]
     Active Substance: SPIRONOLACTONE
     Indication: Product used for unknown indication
     Dosage: 0.5 DOSAGE FORM (1 PC)
     Route: 048
  4. CARVEDILOL [Concomitant]
     Active Substance: CARVEDILOL
     Indication: Product used for unknown indication
     Dosage: 1 DOSAGE FORM (2 PC)
     Route: 048
  5. FUROSEMIDE [Concomitant]
     Active Substance: FUROSEMIDE
     Indication: Oedema
     Dosage: 1 DOSAGE FORM, PRN (1 PC)
     Route: 048
  6. SIMVASTATIN [Concomitant]
     Active Substance: SIMVASTATIN
     Indication: Product used for unknown indication
     Dosage: 2 DOSAGE FORM, QD
     Route: 048

REACTIONS (9)
  - Congestive cardiomyopathy [Unknown]
  - Toxic goitre [Unknown]
  - Breast cancer female [Unknown]
  - Mitral valve incompetence [Unknown]
  - Body mass index increased [Unknown]
  - Waist circumference increased [Unknown]
  - Hypotension [Unknown]
  - Product prescribing error [Unknown]
  - Wrong technique in product usage process [Unknown]
